FAERS Safety Report 21985358 (Version 1)
Quarter: 2023Q1

REPORT INFORMATION
  Report Type: Report from Study
  Country: CA (occurrence: CA)
  Receive Date: 20230213
  Receipt Date: 20230213
  Transmission Date: 20230418
  Serious: Yes (Other)
  Sender: FDA-Public Use
  Company Number: CA-GILEAD-2023-0616322

PATIENT
  Sex: Female

DRUGS (11)
  1. SACITUZUMAB GOVITECAN-HZIY [Suspect]
     Active Substance: SACITUZUMAB GOVITECAN-HZIY
     Indication: Triple negative breast cancer
     Dosage: 540 MG
     Route: 042
     Dates: start: 20230117
  2. DOXORUBICIN [Concomitant]
     Active Substance: DOXORUBICIN
  3. ACETAMINOPHEN [Concomitant]
     Active Substance: ACETAMINOPHEN
     Dosage: 650 MG PO PRE- MEDICATION PRIOR TO TRODELVY
  4. CETIRIZINE HYDROCHLORIDE [Concomitant]
     Active Substance: CETIRIZINE HYDROCHLORIDE
     Dosage: 10 MG PO PRE- MEDICATION PRIOR TO TRODELVY
  5. PROCHLORAZINE [Concomitant]
  6. RANITIDINE [Concomitant]
     Active Substance: RANITIDINE
  7. TYLENOL [Concomitant]
     Active Substance: ACETAMINOPHEN
  8. HYDROMORPHONE [Concomitant]
     Active Substance: HYDROMORPHONE
  9. ONDANSETRON HYDROCHLORIDE [Concomitant]
     Active Substance: ONDANSETRON HYDROCHLORIDE
     Dosage: 8 MG PO PRE- MEDICATION PRIOR TO TRODELVY
  10. METOCLOPRAMIDE HYDROCHLORIDE [Concomitant]
     Active Substance: METOCLOPRAMIDE HYDROCHLORIDE
  11. DECADRON [Concomitant]
     Active Substance: DEXAMETHASONE
     Dosage: 8 MG PO PRE- MEDICATION PRIOR TO TRODELVY

REACTIONS (2)
  - Renal surgery [Unknown]
  - Urinary tract infection [Unknown]
